FAERS Safety Report 16438149 (Version 3)
Quarter: 2019Q3

REPORT INFORMATION
  Report Type: Spontaneous
  Country: SA (occurrence: SA)
  Receive Date: 20190617
  Receipt Date: 20190704
  Transmission Date: 20191004
  Serious: Yes (Hospitalization)
  Sender: FDA-Public Use
  Company Number: SA-CELLTRION INC.-2019SA019173

PATIENT

DRUGS (3)
  1. REMSIMA [Suspect]
     Active Substance: INFLIXIMAB
     Dosage: 250 MG
     Route: 042
  2. REMSIMA [Suspect]
     Active Substance: INFLIXIMAB
     Indication: CROHN^S DISEASE
     Dosage: 250 MG
     Route: 042
  3. REMSIMA [Suspect]
     Active Substance: INFLIXIMAB
     Dosage: 250 MG, MONTHLY, OVER 4 HOURS
     Route: 042
     Dates: start: 20180515, end: 20180515

REACTIONS (6)
  - Incorrect product administration duration [Unknown]
  - Dyspnoea [Recovering/Resolving]
  - Cyanosis [Recovering/Resolving]
  - Underdose [Unknown]
  - Product use issue [Unknown]
  - Tachypnoea [Recovering/Resolving]

NARRATIVE: CASE EVENT DATE: 20180515
